FAERS Safety Report 9667876 (Version 3)
Quarter: 2013Q4

REPORT INFORMATION
  Report Type: Spontaneous
  Country: GB (occurrence: GB)
  Receive Date: 20131104
  Receipt Date: 20131220
  Transmission Date: 20140711
  Serious: Yes (Hospitalization)
  Sender: FDA-Public Use
  Company Number: GB-PFIZER INC-2013312480

PATIENT
  Sex: Male

DRUGS (1)
  1. EPANUTIN [Suspect]
     Dosage: 100 MG

REACTIONS (1)
  - Lower respiratory tract infection [Unknown]
